FAERS Safety Report 4728512-1 (Version None)
Quarter: 2005Q3

REPORT INFORMATION
  Report Type: 
  Country: None (occurrence: None)
  Receive Date: 20050729
  Receipt Date: 20050311
  Transmission Date: 20060218
  Serious: No
  Sender: FDA-Public Use
  Company Number: 2005027466

PATIENT
  Age: 53 Year
  Sex: Female

DRUGS (1)
  1. ZANTAC [Suspect]
     Route: 048
     Dates: start: 19991201

REACTIONS (1)
  - DRUG INEFFECTIVE [None]
